FAERS Safety Report 11060334 (Version 1)
Quarter: 2015Q2

REPORT INFORMATION
  Report Type: Report from Study
  Country: US (occurrence: US)
  Receive Date: 20150423
  Receipt Date: 20150423
  Transmission Date: 20150821
  Serious: No
  Sender: FDA-Public Use
  Company Number: US-AMGEN-USASL2015022314

PATIENT
  Age: 73 Year
  Sex: Male

DRUGS (9)
  1. GABAPENTIN. [Concomitant]
     Active Substance: GABAPENTIN
  2. TYLENOL [Concomitant]
     Active Substance: ACETAMINOPHEN
  3. CYMBALTA [Concomitant]
     Active Substance: DULOXETINE HYDROCHLORIDE
  4. ASA [Concomitant]
     Active Substance: ASPIRIN
  5. OMPRAZOLE [Concomitant]
     Active Substance: OMEPRAZOLE
  6. ALLOPURINOL. [Concomitant]
     Active Substance: ALLOPURINOL
     Indication: BLOOD URIC ACID
  7. LEVODOPA [Concomitant]
     Active Substance: LEVODOPA
  8. ATENOLOL. [Concomitant]
     Active Substance: ATENOLOL
  9. KYPROLIS [Suspect]
     Active Substance: CARFILZOMIB
     Indication: PRODUCT USED FOR UNKNOWN INDICATION
     Dosage: UNK UNK, UNK
     Route: 042

REACTIONS (2)
  - Loose tooth [Unknown]
  - Blood count abnormal [Unknown]
